FAERS Safety Report 7101993-4 (Version None)
Quarter: 2010Q4

REPORT INFORMATION
  Report Type: 
  Country: None (occurrence: None)
  Receive Date: 20101115
  Receipt Date: 20101104
  Transmission Date: 20110411
  Serious: Yes (Hospitalization)
  Sender: FDA-Public Use
  Company Number: FR-SANOFI-AVENTIS-2010SA067270

PATIENT
  Age: 85 Year
  Sex: Male

DRUGS (8)
  1. LASIX [Suspect]
     Route: 048
     Dates: start: 20100301, end: 20100804
  2. ALLOPURINOL [Suspect]
     Route: 048
     Dates: start: 20090201, end: 20100730
  3. KARDEGIC [Concomitant]
     Route: 048
  4. KENZEN [Concomitant]
  5. PARIET [Concomitant]
  6. SOTALEX [Concomitant]
     Dates: start: 20100501
  7. PLAVIX [Concomitant]
  8. OLMESARTAN MEDOXOMIL [Concomitant]
     Route: 048

REACTIONS (1)
  - LICHENOID KERATOSIS [None]
